FAERS Safety Report 4748751-3 (Version None)
Quarter: 2005Q3

REPORT INFORMATION
  Report Type: 
  Country: None (occurrence: None)
  Receive Date: 20050817
  Receipt Date: 20050804
  Transmission Date: 20060218
  Serious: Yes (Hospitalization, Other)
  Sender: FDA-Public Use
  Company Number: 2005BI013280

PATIENT
  Age: 52 Year
  Sex: Female

DRUGS (19)
  1. AVONEX [Suspect]
     Indication: MULTIPLE SCLEROSIS
     Dosage: 30 UG; QW; IM
     Route: 030
     Dates: start: 20030328, end: 20030101
  2. AVONEX [Suspect]
     Indication: MULTIPLE SCLEROSIS
     Dosage: 30 UG; QW; IM
     Route: 030
     Dates: start: 20030101
  3. MIRAPEX [Concomitant]
  4. NASONEX [Concomitant]
  5. ALBUTEROL [Concomitant]
  6. LEVAQUIN [Concomitant]
  7. LEXAPRO [Concomitant]
  8. HYDROCHLOROTHIAZIDE [Concomitant]
  9. DIAVAN [Concomitant]
  10. LACTAID [Concomitant]
  11. CELEBREX [Concomitant]
  12. ALLEGRA [Concomitant]
  13. COREG [Concomitant]
  14. ZOCOR [Concomitant]
  15. PROTONIX [Concomitant]
  16. HYDROCODONE [Concomitant]
  17. NEURONTIN [Concomitant]
  18. KADIAN [Concomitant]
  19. DETROL LA [Concomitant]

REACTIONS (2)
  - BREAST CANCER STAGE III [None]
  - OESTROGEN RECEPTOR ASSAY POSITIVE [None]
